FAERS Safety Report 9390822 (Version 1)
Quarter: 2013Q3

REPORT INFORMATION
  Report Type: Spontaneous
  Country: JP (occurrence: JP)
  Receive Date: 20130709
  Receipt Date: 20130709
  Transmission Date: 20140515
  Serious: Yes (Life-Threatening, Hospitalization, Other)
  Sender: FDA-Public Use
  Company Number: JP-ROXANE LABORATORIES, INC.-2013-RO-01105RO

PATIENT
  Age: 70 Year
  Sex: Male
  Weight: 62 kg

DRUGS (1)
  1. LITHIUM CARBONATE [Suspect]
     Indication: BIPOLAR DISORDER
     Dosage: 500 MG

REACTIONS (6)
  - Cardiac tamponade [Recovered/Resolved]
  - Hypothyroidism [Unknown]
  - Toxicity to various agents [Unknown]
  - Autoimmune thyroiditis [Unknown]
  - Pleural effusion [Unknown]
  - Pericardial effusion [Recovered/Resolved]
